FAERS Safety Report 13094597 (Version 2)
Quarter: 2017Q2

REPORT INFORMATION
  Report Type: Spontaneous
  Country: US (occurrence: US)
  Receive Date: 20170106
  Receipt Date: 20170614
  Transmission Date: 20170830
  Serious: No
  Sender: FDA-Public Use
  Company Number: US-ELI_LILLY_AND_COMPANY-US201612003065

PATIENT
  Age: 34 Year
  Sex: Female
  Weight: 131.5 kg

DRUGS (3)
  1. HUMALOG KWIKPEN [Suspect]
     Active Substance: INSULIN LISPRO
     Indication: GESTATIONAL DIABETES
     Dosage: 5 U, BID
     Route: 065
     Dates: start: 20161202
  2. RELION HUMULIN N [Concomitant]
     Dosage: 26 U, HS
     Route: 058
     Dates: start: 20160830
  3. RELION HUMULIN N [Concomitant]
     Indication: GESTATIONAL DIABETES
     Dosage: 6 U, EACH MORNING
     Route: 058

REACTIONS (1)
  - Maternal exposure during pregnancy [Unknown]

NARRATIVE: CASE EVENT DATE: 20161202
